FAERS Safety Report 7562204-9 (Version None)
Quarter: 2011Q2

REPORT INFORMATION
  Report Type: 
  Country: None (occurrence: None)
  Receive Date: 20110614
  Receipt Date: 20110607
  Transmission Date: 20111010
  Serious: Yes (Other)
  Sender: FDA-Public Use
  Company Number: 11DE002575

PATIENT
  Age: 30 Day
  Sex: Female
  Weight: 2.8 kg

DRUGS (4)
  1. VALPROIC ACID [Suspect]
     Indication: CONVULSION
     Dosage: 10 MG/KG/DAY 30 MG/KG/DAY
  2. PHENOBARBITONE (PHENOBARBITONE) [Concomitant]
  3. SULTIAME (SULTIAME) [Concomitant]
  4. VITAMIN B6 [Concomitant]

REACTIONS (7)
  - OFF LABEL USE [None]
  - LOW SET EARS [None]
  - HYPERTONIA NEONATAL [None]
  - HYPERCAPNIA [None]
  - RHABDOMYOLYSIS [None]
  - NEONATAL RESPIRATORY FAILURE [None]
  - INBORN ERROR OF METABOLISM [None]
